FAERS Safety Report 7474627-7 (Version None)
Quarter: 2011Q1

REPORT INFORMATION
  Report Type: 
  Country: None (occurrence: None)
  Receive Date: 20110302
  Receipt Date: 20100928
  Transmission Date: 20110831
  Serious: Yes (Hospitalization, Other)
  Sender: FDA-Public Use
  Company Number: 163-21880-10041108

PATIENT
  Age: 56 Year
  Sex: Female
  Weight: 60.782 kg

DRUGS (10)
  1. REVLIMID [Suspect]
     Indication: MULTIPLE MYELOMA
     Dosage: 25 MG, 1 IN 1 D, PO; 10 MG, 1 IN 1 D, PO
     Route: 048
     Dates: start: 20100101
  2. REVLIMID [Suspect]
     Indication: MULTIPLE MYELOMA
     Dosage: 25 MG, 1 IN 1 D, PO; 10 MG, 1 IN 1 D, PO
     Route: 048
     Dates: start: 20090417, end: 20090601
  3. FOSAMAX [Concomitant]
  4. CALCIUM + VITAMIN D (CALCIUM D3 ^STADA^) [Concomitant]
  5. SYMBYAX (FLUOXETINE HYDROCHLORIDE W/OLANZAPINE) [Concomitant]
  6. VELCADE [Concomitant]
  7. DEXAMETHASONE [Concomitant]
  8. KLONOPIN [Concomitant]
  9. PROPOXYPHENE (DEXTROPROPOXYPHENE) [Concomitant]
  10. SYNTHROID [Concomitant]

REACTIONS (8)
  - CONVULSION [None]
  - CONTUSION [None]
  - UPPER RESPIRATORY TRACT INFECTION [None]
  - PANCYTOPENIA [None]
  - ORTHOSTATIC HYPOTENSION [None]
  - FALL [None]
  - NEUROPATHY PERIPHERAL [None]
  - PHARYNGITIS [None]
